FAERS Safety Report 7541818-6 (Version None)
Quarter: 2011Q2

REPORT INFORMATION
  Report Type: 
  Country: None (occurrence: None)
  Receive Date: 20110613
  Receipt Date: 20110606
  Transmission Date: 20111010
  Serious: Yes (Other)
  Sender: FDA-Public Use
  Company Number: DE-GENZYME-FLUD-1001222

PATIENT
  Age: 9 Year
  Sex: Male

DRUGS (11)
  1. YTTRIUM (90 Y) [Suspect]
     Indication: CHRONIC GRANULOMATOUS DISEASE
  2. ANTI-THYMOCYTE GLOBULIN NOS [Suspect]
     Indication: STEM CELL TRANSPLANT
     Dosage: UNK
     Route: 065
  3. FLUDARA [Suspect]
     Indication: STEM CELL TRANSPLANT
     Dosage: 160 MG/M2, UNK
     Route: 065
  4. MELPHALAN HYDROCHLORIDE [Suspect]
     Indication: CHRONIC GRANULOMATOUS DISEASE
     Dosage: 70 MG/M2, UNK
     Route: 065
  5. MELPHALAN HYDROCHLORIDE [Suspect]
     Indication: STEM CELL TRANSPLANT
  6. INDIUM IN 111 CHLORIDE [Suspect]
     Indication: STEM CELL TRANSPLANT
     Dosage: UNK, 71 +/- 28 MBQ
     Route: 042
  7. INDIUM IN 111 CHLORIDE [Suspect]
     Indication: CHRONIC GRANULOMATOUS DISEASE
  8. CYCLOSPORINE [Concomitant]
     Indication: PROPHYLAXIS AGAINST GRAFT VERSUS HOST DISEASE
     Dosage: UNK
     Route: 065
  9. FLUDARA [Suspect]
     Indication: CHRONIC GRANULOMATOUS DISEASE
  10. YTTRIUM (90 Y) [Suspect]
     Indication: STEM CELL TRANSPLANT
     Dosage: UNK
     Route: 042
  11. ANTI-THYMOCYTE GLOBULIN NOS [Suspect]
     Indication: CHRONIC GRANULOMATOUS DISEASE

REACTIONS (4)
  - PNEUMONITIS [None]
  - BACTERIAL SEPSIS [None]
  - COLITIS [None]
  - PANCREATITIS ACUTE [None]
